FAERS Safety Report 5125536-X (Version None)
Quarter: 2006Q3

REPORT INFORMATION
  Report Type: 
  Country: None (occurrence: None)
  Receive Date: 20060822
  Receipt Date: 20060608
  Transmission Date: 20061208
  Serious: No
  Sender: FDA-Public Use
  Company Number: PHEH2006US07516

PATIENT
  Sex: Male

DRUGS (5)
  1. ENABLEX [Suspect]
     Indication: HYPERTONIC BLADDER
     Dosage: 15 MG QD
  2. ATENOLOL [Concomitant]
  3. MIRAPEX [Concomitant]
  4. ENALAPRIL MALEATE [Concomitant]
  5. SELEGILINE (SELEGILINE) [Concomitant]

REACTIONS (2)
  - DRUG INEFFECTIVE [None]
  - URINARY INCONTINENCE [None]
